FAERS Safety Report 23312258 (Version 1)
Quarter: 2023Q4

REPORT INFORMATION
  Report Type: Report from Study
  Country: FR (occurrence: FR)
  Receive Date: 20231219
  Receipt Date: 20231219
  Transmission Date: 20240110
  Serious: Yes (Hospitalization)
  Sender: FDA-Public Use
  Company Number: FR-SA-SAC20230921000087

PATIENT
  Age: 81 Year
  Sex: Male

DRUGS (6)
  1. ISATUXIMAB [Suspect]
     Active Substance: ISATUXIMAB
     Indication: Primary amyloidosis
     Dosage: UNK MG
     Route: 041
     Dates: start: 2023, end: 2023
  2. ISATUXIMAB [Suspect]
     Active Substance: ISATUXIMAB
     Dosage: 800 MG
     Route: 065
     Dates: start: 20230822, end: 20230822
  3. POMALIDOMIDE [Suspect]
     Active Substance: POMALIDOMIDE
     Indication: Primary amyloidosis
     Dosage: UNK
     Route: 048
     Dates: start: 2023, end: 2023
  4. POMALIDOMIDE [Suspect]
     Active Substance: POMALIDOMIDE
     Dosage: 3 MG
     Route: 048
     Dates: start: 20230822, end: 20230822
  5. DEXAMETHASONE [Suspect]
     Active Substance: DEXAMETHASONE
     Indication: Primary amyloidosis
     Dosage: UNK
     Route: 048
     Dates: start: 2023, end: 2023
  6. DEXAMETHASONE [Suspect]
     Active Substance: DEXAMETHASONE
     Dosage: 10 MG
     Route: 048
     Dates: start: 20230822, end: 20230822

REACTIONS (1)
  - Dengue fever [Recovered/Resolved]

NARRATIVE: CASE EVENT DATE: 20230905
